FAERS Safety Report 5303669-2 (Version None)
Quarter: 2007Q2

REPORT INFORMATION
  Report Type: 
  Country: None (occurrence: None)
  Receive Date: 20070420
  Receipt Date: 20070417
  Transmission Date: 20071010
  Serious: Yes (Life-Threatening, Hospitalization)
  Sender: FDA-Public Use
  Company Number: DE-PFIZER INC-2007008992

PATIENT
  Sex: Male
  Weight: 106 kg

DRUGS (9)
  1. VIAGRA [Suspect]
     Route: 048
  2. RIFUN [Concomitant]
  3. ZOVIRAX [Concomitant]
  4. IRBESARTAN [Concomitant]
  5. ASCOTOP [Concomitant]
  6. LAMISIL [Concomitant]
  7. KARVEZIDE [Concomitant]
     Route: 048
  8. CARVEDILOL [Concomitant]
     Route: 048
     Dates: start: 20020716
  9. MARCUMAR [Concomitant]

REACTIONS (2)
  - PLEURAL EFFUSION [None]
  - PULMONARY EMBOLISM [None]
